FAERS Safety Report 11180209 (Version 1)
Quarter: 2015Q2

REPORT INFORMATION
  Report Type: Spontaneous
  Country: US (occurrence: US)
  Receive Date: 20150611
  Receipt Date: 20150611
  Transmission Date: 20150821
  Serious: Yes (Death, Hospitalization, Other)
  Sender: FDA-Public Use
  Company Number: US-ELI_LILLY_AND_COMPANY-US201506003252

PATIENT
  Age: 35 Year
  Sex: Female

DRUGS (9)
  1. SOFOSBUVIR [Suspect]
     Active Substance: SOFOSBUVIR
     Indication: CHRONIC HEPATITIS C
     Dosage: 400MG, UNK
     Route: 048
     Dates: start: 20141214
  2. PROZAC [Suspect]
     Active Substance: FLUOXETINE HYDROCHLORIDE
     Indication: DEPRESSION
     Dosage: UNK, UNK
     Route: 048
  3. LOSARTAN [Concomitant]
     Active Substance: LOSARTAN
  4. TRANXEN [Suspect]
     Active Substance: CLORAZEPATE DIPOTASSIUM
     Indication: CONVULSION PROPHYLAXIS
     Route: 048
  5. CLONIDINE. [Concomitant]
     Active Substance: CLONIDINE
  6. PHOSLO [Concomitant]
     Active Substance: CALCIUM ACETATE
  7. KEPPRA [Concomitant]
     Active Substance: LEVETIRACETAM
  8. OLYSIO [Concomitant]
     Active Substance: SIMEPREVIR
     Dosage: UNK
     Dates: start: 20141214
  9. SODIUM BICARBONATE. [Concomitant]
     Active Substance: SODIUM BICARBONATE

REACTIONS (2)
  - Death [Fatal]
  - Drug level increased [Unknown]

NARRATIVE: CASE EVENT DATE: 20150101
